FAERS Safety Report 4455044-0 (Version None)
Quarter: 2004Q3

REPORT INFORMATION
  Report Type: 
  Country: None (occurrence: None)
  Receive Date: 20040917
  Receipt Date: 20040826
  Transmission Date: 20050211
  Serious: Yes (Death, Hospitalization)
  Sender: FDA-Public Use
  Company Number: USA040874495

PATIENT
  Age: 23 Year
  Sex: Female

DRUGS (3)
  1. ZYPREXA [Suspect]
     Indication: BIPOLAR DISORDER
     Dosage: 20 MG/1 IN THE EVENING
     Dates: start: 20040521, end: 20040701
  2. ALBUTEROL [Concomitant]
  3. PAXIL [Concomitant]

REACTIONS (4)
  - COMPLETED SUICIDE [None]
  - MULTIPLE DRUG OVERDOSE [None]
  - RESPIRATION ABNORMAL [None]
  - SUICIDE ATTEMPT [None]
